FAERS Safety Report 12485291 (Version 1)
Quarter: 2016Q2

REPORT INFORMATION
  Report Type: Spontaneous
  Country: US (occurrence: US)
  Receive Date: 20160621
  Receipt Date: 20160621
  Transmission Date: 20160815
  Serious: Yes (Hospitalization)
  Sender: FDA-Public Use
  Company Number: US-LPDUSPRD-20160526

PATIENT
  Age: 7 Month
  Sex: Female
  Weight: 7.8 kg

DRUGS (20)
  1. VECURONIUM [Concomitant]
     Active Substance: VECURONIUM BROMIDE
     Dosage: DOSE NOT PROVIDED
     Route: 065
  2. TOBRAMYCIN/NYSTATIN/MEROPENEM/GENTAMICIN [Concomitant]
     Dosage: DOSE NOT PROVIDED
     Route: 065
  3. SILDENAFIL. [Concomitant]
     Active Substance: SILDENAFIL
     Dosage: DOSE NOT PROVIDED
     Route: 065
  4. CHLOROTHIAZIDE/HYDROCORTISONE/ALDACTONE [Concomitant]
     Dosage: DOSE NOT PROVIDED
     Route: 065
  5. FUROSEMIDE INJECTION, USP (5702-25) [Suspect]
     Active Substance: FUROSEMIDE
     Dosage: 400 MCG/KG/HOUR CONTINUOUS
     Route: 042
  6. HEPARIN [Concomitant]
     Active Substance: HEPARIN SODIUM
     Dosage: DOSE NOT PROVIDED
     Route: 065
  7. MILRONE [Concomitant]
     Dosage: DOSE NOT PROVIDED
     Route: 065
  8. LORAZEPAM. [Suspect]
     Active Substance: LORAZEPAM
     Dosage: 4 MG EVERY 6H (4-6 DOSES/24H)
     Route: 065
  9. ALBUTEROL/BECLOMETHASONE [Concomitant]
     Dosage: DOSE NOT PROVIDED
     Route: 055
  10. FAMOTIDINE/LACTOBACILLUS/CALCIUM CHLORIDE/POTASSIUM CHLORIDE [Concomitant]
     Dosage: DOSE NOT PROVIDED
     Route: 065
  11. NITROPRUSSIDE [Concomitant]
     Active Substance: NITROPRUSSIDE
     Dosage: DOSE NOT PROVIDED
     Route: 065
  12. CALCIUM/POTASSIUM [Concomitant]
     Dosage: DOSE NOT PROVIDED
     Route: 065
  13. LIDOCAINE HCL INJECTION, USP (0517-9402-01) [Suspect]
     Active Substance: LIDOCAINE HYDROCHLORIDE
     Dosage: 20 MCG/KG/MIN CONTINUOUS
     Route: 042
  14. MORPHINE [Suspect]
     Active Substance: MORPHINE
     Dosage: 40 MG EVERY 4 H (3-6 DOSE/24H)
     Route: 065
  15. ACETAMINOPHEN. [Concomitant]
     Active Substance: ACETAMINOPHEN
     Dosage: DOSE NOT PROVIDED
     Route: 065
  16. CHLORIDE/SODIUM CHLORIDE [Concomitant]
     Dosage: DOSE NOT PROVIDED
     Route: 065
  17. METHADONE [Suspect]
     Active Substance: METHADONE HYDROCHLORIDE
     Dosage: 5MG EVERY 6H
     Route: 065
  18. ALBUTEROL. [Concomitant]
     Active Substance: ALBUTEROL
     Dosage: DOSE NOT PROVIDED
     Route: 065
  19. HYDROCORTISONE. [Suspect]
     Active Substance: HYDROCORTISONE
     Dosage: 2.5MG EVERY 12H
     Route: 042
  20. ALBUMIN [Concomitant]
     Active Substance: ALBUMIN HUMAN
     Dosage: DOSE NOT PROVIDED
     Route: 065

REACTIONS (2)
  - Electrocardiogram QT prolonged [Recovered/Resolved with Sequelae]
  - Delirium [Recovered/Resolved]
